FAERS Safety Report 7120559-3 (Version None)
Quarter: 2010Q4

REPORT INFORMATION
  Report Type: 
  Country: None (occurrence: None)
  Receive Date: 20101122
  Receipt Date: 20101122
  Transmission Date: 20110411
  Serious: Yes (Disabling, Other)
  Sender: FDA-Public Use
  Company Number: None

PATIENT
  Age: 19 Year
  Sex: Female
  Weight: 65.7716 kg

DRUGS (1)
  1. NUVARING [Suspect]
     Indication: CONTRACEPTION
     Dosage: 1 RING 1 RING EVERY 3 WKS INTRA-UTERINE
     Route: 015
     Dates: start: 20081201, end: 20090304

REACTIONS (3)
  - ANAEMIA [None]
  - BLOOD IRON DECREASED [None]
  - HAEMORRHAGE [None]
